FAERS Safety Report 5567923-1 (Version None)
Quarter: 2007Q4

REPORT INFORMATION
  Report Type: 
  Country: None (occurrence: None)
  Receive Date: 20071220
  Receipt Date: 20071211
  Transmission Date: 20080405
  Serious: Yes (Hospitalization)
  Sender: FDA-Public Use
  Company Number: US-JNJFOC-20071203374

PATIENT
  Sex: Male
  Weight: 72.58 kg

DRUGS (12)
  1. FENTANYL TRANSDERMAL SYSTEM [Suspect]
     Indication: HIP SURGERY
     Route: 062
  2. FENTANYL TRANSDERMAL SYSTEM [Suspect]
     Indication: PAIN
     Route: 062
  3. HYDROCHLOROTHIAZIDE [Concomitant]
     Indication: FLUID RETENTION
     Route: 048
  4. MS CONTIN [Concomitant]
     Indication: BREAKTHROUGH PAIN
     Dosage: ONE IN THE MORNING AND ONE AT NIGHT
     Route: 048
  5. GABAPENTIN [Concomitant]
     Indication: NEURALGIA
     Route: 048
  6. CELEBREX [Concomitant]
     Indication: ARTHRITIS
     Route: 048
  7. FOSAMAX [Concomitant]
     Indication: BONE DISORDER
     Route: 048
  8. LOTREL [Concomitant]
     Indication: BLOOD PRESSURE
     Dosage: 10/20MG
     Route: 048
  9. SERTRALINE [Concomitant]
     Indication: DEPRESSION
     Route: 048
  10. OXYCODONE HCL [Concomitant]
     Indication: BREAKTHROUGH PAIN
     Route: 048
  11. IBUPROFEN [Concomitant]
     Indication: BREAKTHROUGH PAIN
     Route: 048
  12. POTASSIUM CHLORIDE [Concomitant]
     Dosage: 1 DOSE = 1 TABLESPOON
     Route: 048

REACTIONS (8)
  - DRUG INEFFECTIVE [None]
  - FALL [None]
  - FEMUR FRACTURE [None]
  - GASTROOESOPHAGEAL REFLUX DISEASE [None]
  - HIP FRACTURE [None]
  - INSOMNIA [None]
  - PHARMACEUTICAL PRODUCT COMPLAINT [None]
  - WRONG TECHNIQUE IN DRUG USAGE PROCESS [None]
